FAERS Safety Report 24624756 (Version 3)
Quarter: 2025Q1

REPORT INFORMATION
  Report Type: Spontaneous
  Country: IE (occurrence: IE)
  Receive Date: 20241115
  Receipt Date: 20250127
  Transmission Date: 20250408
  Serious: Yes (Hospitalization, Other)
  Sender: SAMSUNG BIOEPIS
  Company Number: IE-SAMSUNG BIOEPIS-SB-2024-33767

PATIENT
  Age: 26 Year
  Sex: Female

DRUGS (4)
  1. ADALIMUMAB [Suspect]
     Active Substance: ADALIMUMAB
     Indication: Colitis ulcerative
  2. ADALIMUMAB [Suspect]
     Active Substance: ADALIMUMAB
     Dosage: 80 MG START DOSE AND MAINTENANCE DOSE OF 40 MG FORTNIGHTLY THERE AFTER;
  3. PENTASA [Concomitant]
     Active Substance: MESALAMINE
     Indication: Colitis ulcerative
     Dosage: 2 GRAM, BID;
  4. MECLIZINE [Concomitant]
     Active Substance: MECLIZINE HYDROCHLORIDE
     Indication: Colitis ulcerative
     Dosage: 2 GRAM, BID;

REACTIONS (3)
  - Organising pneumonia [Recovered/Resolved]
  - Microcytic anaemia [Recovered/Resolved]
  - Hilar lymphadenopathy [Unknown]
